FAERS Safety Report 12604592 (Version 1)
Quarter: 2016Q3

REPORT INFORMATION
  Report Type: Spontaneous
  Country: BE (occurrence: BE)
  Receive Date: 20160728
  Receipt Date: 20160728
  Transmission Date: 20161109
  Serious: Yes (Hospitalization)
  Sender: FDA-Public Use
  Company Number: BE-B. BRAUN MEDICAL INC.-1055674

PATIENT

DRUGS (2)
  1. PLASMALYTE [Suspect]
     Active Substance: ELECTROLYTES NOS
     Route: 041
  2. POTASSIUM CHLORIDE FOR INJECTION CONCENTRATE USP 0264-1940-20 [Suspect]
     Active Substance: POTASSIUM CHLORIDE
     Route: 041

REACTIONS (1)
  - Acinetobacter infection [None]
